FAERS Safety Report 15117557 (Version 1)
Quarter: 2018Q3

REPORT INFORMATION
  Report Type: Spontaneous
  Country: US (occurrence: US)
  Receive Date: 20180706
  Receipt Date: 20180706
  Transmission Date: 20181010
  Serious: Yes (Other)
  Sender: FDA-Public Use
  Company Number: US-BEH-2018092453

PATIENT
  Sex: Female
  Weight: 79.37 kg

DRUGS (30)
  1. EPINEPHRINE. [Concomitant]
     Active Substance: EPINEPHRINE
  2. ZOLOFT [Concomitant]
     Active Substance: SERTRALINE HYDROCHLORIDE
  3. BIOTIN [Concomitant]
     Active Substance: BIOTIN
  4. FISH OIL [Concomitant]
     Active Substance: FISH OIL
  5. OXYGEN. [Concomitant]
     Active Substance: OXYGEN
  6. HIZENTRA [Suspect]
     Active Substance: HUMAN IMMUNOGLOBULIN G
     Dosage: 20 G, TOT
     Route: 058
  7. DIPHENHYDRAMINE. [Concomitant]
     Active Substance: DIPHENHYDRAMINE
  8. LIDOCAINE. [Concomitant]
     Active Substance: LIDOCAINE
  9. ELIQUIS [Concomitant]
     Active Substance: APIXABAN
  10. KLONOPIN [Concomitant]
     Active Substance: CLONAZEPAM
  11. LAMICTAL [Concomitant]
     Active Substance: LAMOTRIGINE
  12. TRAZODONE [Concomitant]
     Active Substance: TRAZODONE HYDROCHLORIDE
  13. ALLEGRA?D                          /01367401/ [Concomitant]
  14. HIZENTRA [Suspect]
     Active Substance: HUMAN IMMUNOGLOBULIN G
     Indication: IMMUNODEFICIENCY
     Dosage: 20 G, QOW
     Route: 058
     Dates: start: 20180416
  15. RESTASIS [Concomitant]
     Active Substance: CYCLOSPORINE
  16. NAMENDA [Concomitant]
     Active Substance: MEMANTINE HYDROCHLORIDE
  17. FOLIC ACID. [Concomitant]
     Active Substance: FOLIC ACID
  18. ADVAIR HFA [Concomitant]
     Active Substance: FLUTICASONE PROPIONATE\SALMETEROL XINAFOATE
  19. GEODON [Concomitant]
     Active Substance: ZIPRASIDONE HYDROCHLORIDE\ZIPRASIDONE MESYLATE
  20. PRAVASTATIN. [Concomitant]
     Active Substance: PRAVASTATIN
  21. SPIRIVA [Concomitant]
     Active Substance: TIOTROPIUM BROMIDE MONOHYDRATE
  22. VITAMIN C [Concomitant]
     Active Substance: ASCORBIC ACID
  23. ESTRADIOL. [Concomitant]
     Active Substance: ESTRADIOL
  24. ACETAMINOPHEN. [Concomitant]
     Active Substance: ACETAMINOPHEN
  25. AZATHIOPRINE. [Concomitant]
     Active Substance: AZATHIOPRINE
  26. SYNTHROID [Concomitant]
     Active Substance: LEVOTHYROXINE SODIUM
  27. VITAMIN D                          /00107901/ [Concomitant]
     Active Substance: ERGOCALCIFEROL
  28. LASIX [Concomitant]
     Active Substance: FUROSEMIDE
  29. PROBIOTIC ACIDOPHILUS              /00079701/ [Concomitant]
     Active Substance: LACTOBACILLUS ACIDOPHILUS
  30. REMICADE [Concomitant]
     Active Substance: INFLIXIMAB

REACTIONS (1)
  - Pulmonary embolism [Unknown]
